FAERS Safety Report 6984969-7 (Version None)
Quarter: 2010Q3

REPORT INFORMATION
  Report Type: 
  Country: None (occurrence: None)
  Receive Date: 20100915
  Receipt Date: 20100908
  Transmission Date: 20110219
  Serious: Yes (Disabling)
  Sender: FDA-Public Use
  Company Number: CA-BAYER-201032985NA

PATIENT
  Age: 60 Year
  Sex: Female

DRUGS (6)
  1. AVELOX [Suspect]
     Indication: PRODUCT USED FOR UNKNOWN INDICATION
     Dosage: TOTAL DAILY DOSE: 400 MG  UNIT DOSE: 400 MG
     Route: 048
  2. AVELOX [Suspect]
     Dosage: TOTAL DAILY DOSE: 400 MG  UNIT DOSE: 400 MG
     Route: 048
  3. CORTEF [Concomitant]
     Route: 048
  4. MINOCIN [Concomitant]
     Route: 048
  5. MOTRIN [Concomitant]
  6. VITAMINS [Concomitant]

REACTIONS (6)
  - ACTIVITIES OF DAILY LIVING IMPAIRED [None]
  - DISEASE PROGRESSION [None]
  - DYSPNOEA [None]
  - GAIT DISTURBANCE [None]
  - HAND DEFORMITY [None]
  - PAIN [None]
